FAERS Safety Report 7441510-2 (Version None)
Quarter: 2011Q2

REPORT INFORMATION
  Report Type: 
  Country: None (occurrence: None)
  Receive Date: 20110428
  Receipt Date: 20110418
  Transmission Date: 20111010
  Serious: Yes (Other)
  Sender: FDA-Public Use
  Company Number: BR-RANBAXY-2011R5-43821

PATIENT

DRUGS (6)
  1. ISOTRETINOIN [Suspect]
     Dosage: 20 MG, EVERY 3 DAYS
     Route: 048
     Dates: start: 20110201, end: 20110401
  2. ALENIA [Concomitant]
     Indication: BRONCHITIS
     Dosage: UNK, ONCE PER DAY
     Route: 065
  3. ISOTRETINOIN [Suspect]
     Dosage: 20 MG, QOD
     Route: 048
     Dates: start: 20101101, end: 20110101
  4. SELENE [Concomitant]
     Indication: CONTRACEPTION
     Dosage: UNK
     Route: 065
  5. VITANOL A [Suspect]
     Indication: PRODUCT USED FOR UNKNOWN INDICATION
     Dosage: UNK
     Route: 065
  6. ISOTRETINOIN [Suspect]
     Indication: ACNE
     Dosage: 20 MG, QD
     Route: 048
     Dates: start: 20090806, end: 20101001

REACTIONS (7)
  - ACNE [None]
  - CHEST PAIN [None]
  - BLOOD CHOLESTEROL INCREASED [None]
  - ABDOMINAL PAIN [None]
  - DRUG INEFFECTIVE [None]
  - LIP DRY [None]
  - DRY SKIN [None]
